FAERS Safety Report 10785492 (Version 7)
Quarter: 2022Q1

REPORT INFORMATION
  Report Type: Spontaneous
  Country: JP (occurrence: JP)
  Receive Date: 20150211
  Receipt Date: 20220129
  Transmission Date: 20220423
  Serious: Yes (Other)
  Sender: FDA-Public Use
  Company Number: JP-DSJP-DSJ-2015-103112

PATIENT
  Age: 72 Year
  Sex: Female

DRUGS (3)
  1. DENOSUMAB [Suspect]
     Active Substance: DENOSUMAB
     Indication: Breast cancer
     Dosage: 120 MILLIGRAM
     Route: 058
     Dates: end: 20141217
  2. DENOSUMAB [Suspect]
     Active Substance: DENOSUMAB
     Indication: Metastases to bone
     Dosage: UNK
     Route: 058
     Dates: start: 201506
  3. ZOMETA [Suspect]
     Active Substance: ZOLEDRONIC ACID
     Indication: Product used for unknown indication
     Dosage: UNK
     Route: 065
     Dates: start: 201404

REACTIONS (5)
  - Gingival abscess [Not Recovered/Not Resolved]
  - Osteomyelitis [Not Recovered/Not Resolved]
  - Osteonecrosis of jaw [Unknown]
  - Exostosis of jaw [Not Recovered/Not Resolved]
  - No adverse event [Unknown]
